FAERS Safety Report 17973698 (Version 1)
Quarter: 2020Q2

REPORT INFORMATION
  Report Type: Spontaneous
  Country: US (occurrence: US)
  Receive Date: 20200630
  Receipt Date: 20200630
  Transmission Date: 20200714
  Serious: No
  Sender: FDA-Public Use
  Company Number: None

PATIENT
  Age: 70 Year
  Sex: Male

DRUGS (25)
  1. BACITRACIN. [Concomitant]
     Active Substance: BACITRACIN
  2. TERBINAFINE. [Concomitant]
     Active Substance: TERBINAFINE
  3. GABAPENTIN. [Concomitant]
     Active Substance: GABAPENTIN
  4. IBUPROFEN. [Concomitant]
     Active Substance: IBUPROFEN
  5. NEO/POLY/DEX [Concomitant]
     Active Substance: DEXAMETHASONE\NEOMYCIN\POLYMYXIN B SULFATE
  6. OXYCODONE [Concomitant]
     Active Substance: OXYCODONE
  7. TAB-A-VITE [Concomitant]
  8. TYLENOL [Concomitant]
     Active Substance: ACETAMINOPHEN
  9. REGULOID [Concomitant]
     Active Substance: PSYLLIUM HUSK
  10. TAMSULOSIN [Concomitant]
     Active Substance: TAMSULOSIN
  11. CARVEDILOL. [Concomitant]
     Active Substance: CARVEDILOL
  12. CLOTRIMAZOLE. [Concomitant]
     Active Substance: CLOTRIMAZOLE
  13. DICLOFENAC [Concomitant]
     Active Substance: DICLOFENAC
  14. ERYTHROMYCIN. [Concomitant]
     Active Substance: ERYTHROMYCIN
  15. LOSARTAN. [Concomitant]
     Active Substance: LOSARTAN
  16. TIVICAY [Concomitant]
     Active Substance: DOLUTEGRAVIR SODIUM
  17. ZOLPIDEM [Concomitant]
     Active Substance: ZOLPIDEM TARTRATE
  18. CICLOPIROX. [Concomitant]
     Active Substance: CICLOPIROX
  19. CLOPIDOGREL [Concomitant]
     Active Substance: CLOPIDOGREL BISULFATE
  20. LIDOCAINE. [Concomitant]
     Active Substance: LIDOCAINE
  21. PRAVASTATIN. [Concomitant]
     Active Substance: PRAVASTATIN
  22. ODEFSEY [Suspect]
     Active Substance: EMTRICITABINE\RILPIVIRINE HYDROCHLORIDE\TENOFOVIR ALAFENAMIDE FUMARATE
     Indication: HIV INFECTION
     Route: 048
     Dates: start: 20181029, end: 20200630
  23. ASPIRIN. [Concomitant]
     Active Substance: ASPIRIN
  24. DOK (DOCUSATE SODIUM) [Concomitant]
  25. SENNA [Concomitant]
     Active Substance: SENNA LEAF\SENNOSIDES\SENNOSIDES A AND B

REACTIONS (1)
  - Renal impairment [None]

NARRATIVE: CASE EVENT DATE: 20200630
